FAERS Safety Report 18385434 (Version 2)
Quarter: 2020Q4

REPORT INFORMATION
  Report Type: Spontaneous
  Country: US (occurrence: US)
  Receive Date: 20201015
  Receipt Date: 20201019
  Transmission Date: 20210114
  Serious: No
  Sender: FDA-Public Use
  Company Number: US-JNJFOC-20201016870

PATIENT

DRUGS (1)
  1. ZYRTEC [Suspect]
     Active Substance: CETIRIZINE HYDROCHLORIDE
     Indication: URTICARIA
     Dosage: USED FOR 2 WEEKS
     Route: 065

REACTIONS (3)
  - Swelling of eyelid [Unknown]
  - Withdrawal syndrome [Unknown]
  - Urticaria [Unknown]
